FAERS Safety Report 6223248-2 (Version None)
Quarter: 2009Q2

REPORT INFORMATION
  Report Type: 
  Country: None (occurrence: None)
  Receive Date: 20090611
  Receipt Date: 20090528
  Transmission Date: 20091009
  Serious: Yes (Hospitalization)
  Sender: FDA-Public Use
  Company Number: PHHO2009FR03469

PATIENT
  Sex: Female
  Weight: 58.5 kg

DRUGS (3)
  1. RAD 666 RAD+TAB+CMAS [Suspect]
     Indication: MALIGNANT NEOPLASM OF ISLETS OF LANGERHANS
     Dosage: UNK
     Route: 048
     Dates: start: 20070921, end: 20090305
  2. RAD 666 RAD+TAB+CMAS [Suspect]
     Dosage: NO TREATMENT
     Dates: start: 20090306, end: 20090319
  3. RAD 666 RAD+TAB+CMAS [Suspect]
     Dosage: UNK
     Dates: start: 20090320

REACTIONS (4)
  - ASCITES [None]
  - CONSTIPATION [None]
  - PANCREATECTOMY [None]
  - SPLENECTOMY [None]
